FAERS Safety Report 20279538 (Version 8)
Quarter: 2022Q3

REPORT INFORMATION
  Report Type: Report from Study
  Country: BE (occurrence: None)
  Receive Date: 20220103
  Receipt Date: 20220706
  Transmission Date: 20221027
  Serious: Yes (Hospitalization)
  Sender: FDA-Public Use
  Company Number: BE-ROCHE-2988236

PATIENT
  Age: 54 Year
  Sex: Female
  Weight: 71.5 kg

DRUGS (61)
  1. OCRELIZUMAB [Suspect]
     Active Substance: OCRELIZUMAB
     Indication: Relapsing-remitting multiple sclerosis
     Dosage: INTRAVENOUS (IV) INFUSIONS ON DAYS 1 AND 15 FOR THE FIRST DOSE AND AS A SINGLE INFUSION FOR ALL SUBS
     Route: 042
     Dates: start: 20120403, end: 20120403
  2. OCRELIZUMAB [Suspect]
     Active Substance: OCRELIZUMAB
     Route: 042
     Dates: start: 20120417, end: 20120417
  3. OCRELIZUMAB [Suspect]
     Active Substance: OCRELIZUMAB
     Route: 042
     Dates: start: 20120918, end: 20120918
  4. OCRELIZUMAB [Suspect]
     Active Substance: OCRELIZUMAB
     Route: 042
     Dates: start: 20130304, end: 20130304
  5. OCRELIZUMAB [Suspect]
     Active Substance: OCRELIZUMAB
     Route: 042
     Dates: start: 20130819, end: 20130819
  6. PLACEBO [Suspect]
     Active Substance: UNSPECIFIED INGREDIENT
     Indication: Relapsing-remitting multiple sclerosis
     Route: 058
     Dates: start: 20120403
  7. PLACEBO [Suspect]
     Active Substance: UNSPECIFIED INGREDIENT
     Route: 058
     Dates: start: 20140206, end: 20140320
  8. OCRELIZUMAB [Suspect]
     Active Substance: OCRELIZUMAB
     Indication: Relapsing-remitting multiple sclerosis
     Dosage: INTRAVENOUS (IV) INFUSIONS ON DAYS 1 AND 15 FOR THE FIRST DOSE AND AS A SINGLE INFUSION FOR ALL SUBS
     Route: 042
     Dates: start: 20140320, end: 20140320
  9. OCRELIZUMAB [Suspect]
     Active Substance: OCRELIZUMAB
     Route: 042
     Dates: start: 20140403, end: 20140403
  10. OCRELIZUMAB [Suspect]
     Active Substance: OCRELIZUMAB
     Route: 042
     Dates: start: 20140902, end: 20140902
  11. OCRELIZUMAB [Suspect]
     Active Substance: OCRELIZUMAB
     Route: 042
     Dates: start: 20150217, end: 20150217
  12. OCRELIZUMAB [Suspect]
     Active Substance: OCRELIZUMAB
     Route: 042
     Dates: start: 20150806, end: 20150806
  13. OCRELIZUMAB [Suspect]
     Active Substance: OCRELIZUMAB
     Route: 042
     Dates: start: 20160204, end: 20160204
  14. OCRELIZUMAB [Suspect]
     Active Substance: OCRELIZUMAB
     Route: 042
     Dates: start: 20160705, end: 20160705
  15. OCRELIZUMAB [Suspect]
     Active Substance: OCRELIZUMAB
     Route: 042
     Dates: start: 20161220, end: 20161220
  16. OCRELIZUMAB [Suspect]
     Active Substance: OCRELIZUMAB
     Route: 042
     Dates: start: 20170606, end: 20170606
  17. OCRELIZUMAB [Suspect]
     Active Substance: OCRELIZUMAB
     Route: 042
     Dates: start: 20171128, end: 20171128
  18. OCRELIZUMAB [Suspect]
     Active Substance: OCRELIZUMAB
     Route: 042
     Dates: start: 20180514, end: 20180514
  19. OCRELIZUMAB [Suspect]
     Active Substance: OCRELIZUMAB
     Route: 042
     Dates: start: 20181029, end: 20181029
  20. OCRELIZUMAB [Suspect]
     Active Substance: OCRELIZUMAB
     Route: 042
     Dates: start: 20190409, end: 20190409
  21. OCRELIZUMAB [Suspect]
     Active Substance: OCRELIZUMAB
     Route: 042
     Dates: start: 20191001, end: 20191001
  22. OCRELIZUMAB [Suspect]
     Active Substance: OCRELIZUMAB
     Route: 042
     Dates: start: 20200519, end: 20200519
  23. OCRELIZUMAB [Suspect]
     Active Substance: OCRELIZUMAB
     Route: 042
     Dates: start: 20201029, end: 20201029
  24. OCRELIZUMAB [Suspect]
     Active Substance: OCRELIZUMAB
     Route: 042
     Dates: start: 20210427, end: 20210427
  25. OCRELIZUMAB [Suspect]
     Active Substance: OCRELIZUMAB
     Route: 042
     Dates: start: 20211012, end: 20211012
  26. OCRELIZUMAB [Suspect]
     Active Substance: OCRELIZUMAB
     Route: 042
     Dates: start: 20220426, end: 20220426
  27. ZYRTEC (BELGIUM) [Concomitant]
     Indication: Premedication
     Dosage: SUBSEQUENT DOSES ON: 17APR2012,18SEP2012, 04MAR2013, 19AUG2013, 20MAR2014, 03APR2014, 02SEP2014, 17F
     Dates: start: 20120403
  28. METHYLPREDNISOLONE [Concomitant]
     Active Substance: METHYLPREDNISOLONE
     Indication: Premedication
     Dosage: SUBSEQUENT DOSES ON: 17APR2012,18SEP2012, 04MAR2013, 19AUG2013, 20MAR2014, 03APR2014, 02SEP2014, 17F
     Dates: start: 20120403, end: 20120403
  29. IBUPROFEN [Concomitant]
     Active Substance: IBUPROFEN
     Indication: Nasopharyngitis
     Dates: start: 20210906
  30. RHINOSINUTAB [Concomitant]
     Indication: Nasopharyngitis
     Dates: start: 20211011
  31. LASIX [Concomitant]
     Active Substance: FUROSEMIDE
     Indication: Oedema peripheral
     Dates: start: 201112
  32. DESOGESTREL [Concomitant]
     Active Substance: DESOGESTREL
     Dates: start: 20130715
  33. TUSSETHYL [Concomitant]
     Indication: COVID-19
     Dates: start: 20211213, end: 20211220
  34. MOTILIUM [Concomitant]
     Active Substance: DOMPERIDONE
     Indication: COVID-19
     Dates: start: 20211213, end: 20211220
  35. PANTOPRAZOLE SODIUM [Concomitant]
     Active Substance: PANTOPRAZOLE SODIUM
     Indication: COVID-19
     Dates: start: 20211213, end: 20211220
  36. PANTOPRAZOLE SODIUM [Concomitant]
     Active Substance: PANTOPRAZOLE SODIUM
     Dates: start: 20211221
  37. AMOXICILLIN\CLAVULANATE POTASSIUM [Concomitant]
     Active Substance: AMOXICILLIN\CLAVULANATE POTASSIUM
     Indication: COVID-19
     Dates: start: 20211214, end: 20211214
  38. DEXAMETHASONE [Concomitant]
     Active Substance: DEXAMETHASONE
     Indication: COVID-19
     Dates: start: 20211220, end: 20211230
  39. DEXAMETHASONE [Concomitant]
     Active Substance: DEXAMETHASONE
     Dates: start: 20220106, end: 20220112
  40. FENOTEROL HYDROBROMIDE [Concomitant]
     Active Substance: FENOTEROL HYDROBROMIDE
     Indication: COVID-19
     Dates: start: 20211220, end: 20211220
  41. FENOTEROL HYDROBROMIDE [Concomitant]
     Active Substance: FENOTEROL HYDROBROMIDE
     Dates: start: 20211224, end: 20220105
  42. FENOTEROL HYDROBROMIDE [Concomitant]
     Active Substance: FENOTEROL HYDROBROMIDE
     Dates: start: 20211224, end: 20211224
  43. FENOTEROL HYDROBROMIDE [Concomitant]
     Active Substance: FENOTEROL HYDROBROMIDE
     Dates: start: 20220106, end: 20220120
  44. FENOTEROL HYDROBROMIDE [Concomitant]
     Active Substance: FENOTEROL HYDROBROMIDE
     Dates: start: 20220121, end: 20220124
  45. OXYGEN [Concomitant]
     Active Substance: OXYGEN
     Indication: COVID-19
     Dates: start: 20211220, end: 20211225
  46. SOTROVIMAB [Concomitant]
     Active Substance: SOTROVIMAB
     Indication: COVID-19
     Dates: start: 20211221, end: 20211221
  47. SOTROVIMAB [Concomitant]
     Active Substance: SOTROVIMAB
     Dates: start: 20220126, end: 20220126
  48. ACETYLCYSTEINE [Concomitant]
     Active Substance: ACETYLCYSTEINE
     Indication: COVID-19
     Dates: start: 20211224, end: 20220105
  49. IBUPROFEN [Concomitant]
     Active Substance: IBUPROFEN
     Indication: COVID-19
     Dates: start: 20211213, end: 20211220
  50. ASPIRIN DL-LYSINE [Concomitant]
     Active Substance: ASPIRIN DL-LYSINE
     Indication: Pneumonia
     Dates: start: 20220105, end: 20220105
  51. ASPIRIN DL-LYSINE [Concomitant]
     Active Substance: ASPIRIN DL-LYSINE
     Dates: start: 20220121, end: 20220122
  52. MOMETASONE [Concomitant]
     Active Substance: MOMETASONE
     Indication: COVID-19
     Dates: start: 20211213, end: 20220120
  53. MOMETASONE [Concomitant]
     Active Substance: MOMETASONE
     Indication: Nasopharyngitis
     Dates: start: 20211013, end: 20211103
  54. ONDANSETRON [Concomitant]
     Active Substance: ONDANSETRON
     Indication: Pneumonia
     Dates: start: 20220107, end: 20220107
  55. ONDANSETRON [Concomitant]
     Active Substance: ONDANSETRON
     Dates: end: 20220110
  56. VEKLURY [Concomitant]
     Active Substance: REMDESIVIR
     Indication: Pneumonia
     Dates: end: 20200111
  57. PRIMPERAN [Concomitant]
     Active Substance: METOCLOPRAMIDE HYDROCHLORIDE
     Indication: Pneumonia
     Dates: start: 20220112, end: 20220120
  58. THEALOZ DUO GEL [Concomitant]
     Dates: start: 20190523, end: 20190606
  59. FLUCLOXACILLIN [Concomitant]
     Active Substance: FLUCLOXACILLIN
     Dates: start: 20220203, end: 20220209
  60. LAGEVRIO [Concomitant]
     Active Substance: MOLNUPIRAVIR
     Indication: Pneumonia
     Dates: start: 20220107, end: 20220111
  61. MOXIFLOXACIN [Concomitant]
     Active Substance: MOXIFLOXACIN
     Indication: Pneumonia
     Dates: start: 20220104, end: 20220104

REACTIONS (1)
  - COVID-19 pneumonia [Recovered/Resolved with Sequelae]

NARRATIVE: CASE EVENT DATE: 20211209
